FAERS Safety Report 10034397 (Version 1)
Quarter: 2014Q1

REPORT INFORMATION
  Report Type: Spontaneous
  Country: US (occurrence: None)
  Receive Date: 20140321
  Receipt Date: 20140321
  Transmission Date: 20141002
  Serious: Yes (Hospitalization)
  Sender: FDA-Public Use
  Company Number: KAD201403-000314

PATIENT
  Age: 59 Year
  Sex: Male
  Weight: 100.3 kg

DRUGS (12)
  1. RIBAVIRIN [Suspect]
     Route: 048
     Dates: start: 20131202
  2. SOF/LDV (SOFOSBUVIR, LEDIPASVIR) [Suspect]
     Route: 048
     Dates: start: 20131202
  3. OXYCODONE (OXYCODONE) [Concomitant]
  4. FLEXERIL (CYCLOBENZAPRINE HC1) [Concomitant]
  5. ASPIRIN (ACETYLSALICYLCI ACID) [Concomitant]
  6. TYLENOL (ACETAMINIPHEN) [Concomitant]
  7. ALLOPURINOL (ALLOPURINOL) [Concomitant]
  8. LASIX (FUROSEMIDE) [Concomitant]
  9. ALDACTONE (SPIRONOLACTONE) [Concomitant]
  10. PAPAVERINE -ALPROSTADIL (PAPAVERINE, ALPROSTADIL) [Concomitant]
  11. PREDNISONE (PREDNISONE) [Concomitant]
  12. TACROLIMUS (TACROLIMUS) [Concomitant]

REACTIONS (5)
  - Sick sinus syndrome [None]
  - Sinus arrhythmia [None]
  - Syncope [None]
  - Sinus arrest [None]
  - Fall [None]
